FAERS Safety Report 5835470-5 (Version None)
Quarter: 2008Q3

REPORT INFORMATION
  Report Type: 
  Country: None (occurrence: None)
  Receive Date: 20080806
  Receipt Date: 20080731
  Transmission Date: 20090109
  Serious: Yes (Other)
  Sender: FDA-Public Use
  Company Number: AU-AVENTIS-200817294GDDC

PATIENT
  Age: 60 Year
  Sex: Female

DRUGS (2)
  1. ARAVA [Suspect]
     Route: 048
     Dates: start: 20080616
  2. RULIDE [Suspect]
     Dosage: DOSE: UNK
     Route: 048

REACTIONS (2)
  - BURNING SENSATION [None]
  - HAEMOPTYSIS [None]
